FAERS Safety Report 8581200-6 (Version None)
Quarter: 2012Q3

REPORT INFORMATION
  Report Type: 
  Country: None (occurrence: None)
  Receive Date: 20120809
  Receipt Date: 20120806
  Transmission Date: 20120928
  Serious: Yes (Death)
  Sender: FDA-Public Use
  Company Number: DE-SANOFI-AVENTIS-2012SA056212

PATIENT
  Age: 55 Year
  Sex: Male

DRUGS (4)
  1. FLUOROURACIL [Suspect]
     Route: 041
  2. OXALIPLATIN [Suspect]
     Route: 041
  3. LEUCOVORIN CALCIUM [Suspect]
     Route: 042
  4. DOCETAXEL [Suspect]
     Route: 041

REACTIONS (1)
  - DEATH [None]
